FAERS Safety Report 9408574 (Version 1)
Quarter: 2013Q3

REPORT INFORMATION
  Report Type: Spontaneous
  Country: US (occurrence: US)
  Receive Date: 20130718
  Receipt Date: 20130718
  Transmission Date: 20140515
  Serious: No
  Sender: FDA-Public Use
  Company Number: US-ASTELLAS-2013US005598

PATIENT
  Age: 58 Year
  Sex: Female
  Weight: 102 kg

DRUGS (1)
  1. VESICARE [Suspect]
     Indication: HYPERTONIC BLADDER
     Dosage: 10 MG, UID/QD
     Route: 048
     Dates: start: 201305

REACTIONS (4)
  - Musculoskeletal pain [Unknown]
  - Eructation [Unknown]
  - Chest discomfort [Unknown]
  - Chest pain [Unknown]
